FAERS Safety Report 16524647 (Version 11)
Quarter: 2020Q2

REPORT INFORMATION
  Report Type: Spontaneous
  Country: CA (occurrence: CA)
  Receive Date: 20190703
  Receipt Date: 20200624
  Transmission Date: 20200713
  Serious: Yes (Other)
  Sender: FDA-Public Use
  Company Number: CA-PFIZER INC-2019221000

PATIENT
  Age: 57 Year
  Sex: Female

DRUGS (5)
  1. XELJANZ [Suspect]
     Active Substance: TOFACITINIB CITRATE
     Dosage: 10 MG, 2X/DAY
     Route: 048
     Dates: start: 20190920, end: 2020
  2. PANCREATIC ENZYMES [Concomitant]
     Active Substance: UNSPECIFIED INGREDIENT
     Indication: PANCREATIC DISORDER
     Dosage: UNK, WITH EVERY MEAL
  3. XELJANZ [Suspect]
     Active Substance: TOFACITINIB CITRATE
     Indication: COLITIS ULCERATIVE
     Dosage: 10 MG, TWICE DAILY (MAY/JUN2019)
     Route: 048
     Dates: start: 20190517, end: 2019
  4. XELJANZ [Suspect]
     Active Substance: TOFACITINIB CITRATE
     Dosage: 5 MG, 2X/DAY
     Route: 048
     Dates: start: 2020
  5. PREDNISONE. [Concomitant]
     Active Substance: PREDNISONE
     Dosage: UNK

REACTIONS (11)
  - Oropharyngeal pain [Unknown]
  - Impaired quality of life [Not Recovered/Not Resolved]
  - Insomnia [Recovering/Resolving]
  - Therapeutic product effect delayed [Unknown]
  - Speech disorder [Recovering/Resolving]
  - Fatigue [Unknown]
  - Facial paralysis [Recovering/Resolving]
  - Tongue paralysis [Unknown]
  - Headache [Not Recovered/Not Resolved]
  - Pancreatic disorder [Unknown]
  - Condition aggravated [Not Recovered/Not Resolved]

NARRATIVE: CASE EVENT DATE: 2019
